FAERS Safety Report 10586348 (Version 2)
Quarter: 2014Q4

REPORT INFORMATION
  Report Type: Spontaneous
  Country: US (occurrence: US)
  Receive Date: 20141117
  Receipt Date: 20141204
  Transmission Date: 20150529
  Serious: Yes (Other)
  Sender: FDA-Public Use
  Company Number: US-009507513-1411USA004307

PATIENT
  Age: 33 Year
  Sex: Female

DRUGS (1)
  1. PROSCAR [Suspect]
     Active Substance: FINASTERIDE
     Dosage: 5 MG,ONCE ACIDENTALLY, ROUTE: SKIN
     Route: 061
     Dates: start: 20141107, end: 20141107

REACTIONS (2)
  - Maternal exposure during pregnancy [Unknown]
  - Accidental exposure to product [Unknown]

NARRATIVE: CASE EVENT DATE: 20141107
